FAERS Safety Report 4630912-5 (Version None)
Quarter: 2005Q2

REPORT INFORMATION
  Report Type: 
  Country: None (occurrence: None)
  Receive Date: 20050407
  Receipt Date: 20050407
  Transmission Date: 20051028
  Serious: Yes (Other)
  Sender: FDA-Public Use
  Company Number: None

PATIENT
  Age: 43 Year
  Sex: Female
  Weight: 109 kg

DRUGS (12)
  1. LIPITOR [Suspect]
     Indication: HYPERLIPIDAEMIA
     Dosage: 40 MG PO QD
     Route: 048
     Dates: start: 20030101, end: 20050222
  2. FOSINOPRIL [Concomitant]
  3. AVAPRO [Concomitant]
  4. MAG OX [Concomitant]
  5. HYDRALAZINE [Concomitant]
  6. FUROSEMIDE [Concomitant]
  7. POTASSIUM CHLORIDE [Concomitant]
  8. METOPROLOL TARTRATE [Concomitant]
  9. NORVASC [Concomitant]
  10. AVANDIA [Concomitant]
  11. AMARYL [Concomitant]
  12. CLONIDINE [Concomitant]

REACTIONS (2)
  - HAEMODIALYSIS [None]
  - RHABDOMYOLYSIS [None]
